FAERS Safety Report 13446717 (Version 1)
Quarter: 2017Q2

REPORT INFORMATION
  Report Type: Spontaneous
  Country: US (occurrence: US)
  Receive Date: 20170417
  Receipt Date: 20170417
  Transmission Date: 20170830
  Serious: No
  Sender: FDA-Public Use
  Company Number: US-ASTRAZENECA-2017SE36255

PATIENT
  Age: 181 Day
  Sex: Male
  Weight: 7.3 kg

DRUGS (1)
  1. NEXIUM [Suspect]
     Active Substance: ESOMEPRAZOLE MAGNESIUM
     Indication: GASTROOESOPHAGEAL REFLUX DISEASE
     Route: 048
     Dates: start: 20170401

REACTIONS (4)
  - Infantile spitting up [Recovered/Resolved]
  - Circumstance or information capable of leading to medication error [Recovered/Resolved]
  - Vomiting projectile [Recovered/Resolved]
  - Off label use [Unknown]

NARRATIVE: CASE EVENT DATE: 20170401
